FAERS Safety Report 10333084 (Version 1)
Quarter: 2014Q3

REPORT INFORMATION
  Report Type: Spontaneous
  Country: US (occurrence: US)
  Receive Date: 20140722
  Receipt Date: 20140722
  Transmission Date: 20150326
  Serious: Yes (Other)
  Sender: FDA-Public Use
  Company Number: US-SANOFI-AVENTIS-2013SA083979

PATIENT
  Sex: Female

DRUGS (2)
  1. AMBIEN CR [Suspect]
     Active Substance: ZOLPIDEM TARTRATE
     Route: 048
  2. AMITRIPTYLINE HYDROCHLORIDE/PERPHENAZINE [Concomitant]
     Indication: AFFECTIVE DISORDER

REACTIONS (1)
  - Panic attack [Unknown]
